FAERS Safety Report 8790925 (Version 1)
Quarter: 2012Q4

REPORT INFORMATION
  Report Type: Spontaneous
  Country: US (occurrence: None)
  Receive Date: 20120913
  Receipt Date: 20120913
  Transmission Date: 20130627
  Serious: Yes (Other)
  Sender: FDA-Public Use
  Company Number: None

PATIENT
  Age: 54 Year
  Sex: Female
  Weight: 71.4 kg

DRUGS (7)
  1. ESCITALOPRAM [Concomitant]
     Dosage: 20mg QD PO
     Route: 048
     Dates: start: 20120906, end: 20120910
  2. OMEPRAZOLE [Concomitant]
  3. MONELUKAST [Concomitant]
  4. LORATIDINE [Concomitant]
  5. SIMVASTATIN [Concomitant]
  6. DOXYCYCLINE [Concomitant]
  7. ATIVAN [Concomitant]

REACTIONS (4)
  - Nausea [None]
  - Vomiting [None]
  - Feeling jittery [None]
  - Unevaluable event [None]
